FAERS Safety Report 20195617 (Version 2)
Quarter: 2022Q1

REPORT INFORMATION
  Report Type: Spontaneous
  Country: IN (occurrence: IN)
  Receive Date: 20211216
  Receipt Date: 20220119
  Transmission Date: 20220424
  Serious: Yes (Death, Other)
  Sender: FDA-Public Use
  Company Number: IN-PFIZER INC-2021001338

PATIENT
  Age: 75 Year
  Sex: Male
  Weight: 72 kg

DRUGS (2)
  1. SUTENT [Suspect]
     Active Substance: SUNITINIB MALATE
     Indication: Metastatic renal cell carcinoma
     Dosage: 50 MG, 1X/DAY
     Route: 048
     Dates: start: 20200722
  2. SUTENT [Suspect]
     Active Substance: SUNITINIB MALATE
     Dosage: 25 MG, CYCLIC (SCHEME 2/1, ONCE DAILY)
     Route: 048
     Dates: start: 20201223, end: 20210414

REACTIONS (1)
  - Death [Fatal]

NARRATIVE: CASE EVENT DATE: 20210414
